FAERS Safety Report 19706823 (Version 1)
Quarter: 2021Q3

REPORT INFORMATION
  Report Type: Other
  Country: CA (occurrence: CA)
  Receive Date: 20210817
  Receipt Date: 20210817
  Transmission Date: 20211014
  Serious: Yes (Other)
  Sender: FDA-Public Use
  Company Number: CA-APOTEX-2021AP032027

PATIENT
  Age: 68 Year
  Sex: Male

DRUGS (1)
  1. DILTIAZEM. [Suspect]
     Active Substance: DILTIAZEM
     Indication: ATRIAL FLUTTER
     Dosage: UNK, THERAPY DURATION? 59 UNSPECIFIED UNIT
     Route: 065

REACTIONS (1)
  - Cardiac flutter [Unknown]
